FAERS Safety Report 7382069-8 (Version None)
Quarter: 2011Q1

REPORT INFORMATION
  Report Type: 
  Country: None (occurrence: None)
  Receive Date: 20110329
  Receipt Date: 20110315
  Transmission Date: 20110831
  Serious: Yes (Life-Threatening, Hospitalization)
  Sender: FDA-Public Use
  Company Number: DE-ELI_LILLY_AND_COMPANY-DE201103004960

PATIENT
  Sex: Male
  Weight: 89 kg

DRUGS (12)
  1. METOPROLOL TARTRATE [Concomitant]
     Indication: HYPERTENSION
     Dates: start: 20060101
  2. KALINOR [Concomitant]
     Indication: PROPHYLAXIS
     Dates: start: 20100921
  3. MAGNESIUM VERLA                    /00648601/ [Concomitant]
     Indication: PROPHYLAXIS
     Dates: start: 20100921
  4. DEXAMETHASONE [Concomitant]
     Indication: PROPHYLAXIS
     Dates: start: 20100902
  5. PEMETREXED [Suspect]
     Indication: HEAD AND NECK CANCER
     Dosage: 500MG/M2 DAY 1 EVERY 21 DAYS
     Route: 042
     Dates: start: 20100907, end: 20110301
  6. CETUXIMAB [Suspect]
     Dosage: 250 MG/M2, WEEKLY
     Route: 042
     Dates: end: 20110301
  7. RAMIPRIL [Concomitant]
     Indication: HYPERTENSION
     Dates: start: 20060101
  8. CETUXIMAB [Suspect]
     Indication: HEAD AND NECK CANCER
     Dosage: 400MG/M2 ON DAY ONE CYCLE ONE ONLY
     Route: 042
     Dates: start: 20100907
  9. CISPLATIN [Suspect]
     Indication: HEAD AND NECK CANCER
     Dosage: 75 MG/M2, DAY 1 EVERY 21 DAYS
     Route: 042
     Dates: start: 20100907, end: 20110111
  10. FOLIC ACID [Concomitant]
     Indication: PROPHYLAXIS
     Dates: start: 20100902
  11. VITAMIN B-12 [Concomitant]
     Indication: PROPHYLAXIS
     Dates: start: 20100902
  12. CALCIUM DURA [Concomitant]
     Indication: PROPHYLAXIS
     Dates: start: 20101123

REACTIONS (1)
  - CARDIO-RESPIRATORY ARREST [None]
